FAERS Safety Report 25213360 (Version 10)
Quarter: 2025Q4

REPORT INFORMATION
  Report Type: Spontaneous
  Country: IL (occurrence: IL)
  Receive Date: 20250418
  Receipt Date: 20251020
  Transmission Date: 20260118
  Serious: Yes (Hospitalization)
  Sender: PFIZER
  Company Number: IL-PFIZER INC-2019432321

PATIENT
  Age: 67 Year
  Sex: Female

DRUGS (33)
  1. ELELYSO [Suspect]
     Active Substance: TALIGLUCERASE ALFA
     Indication: Gaucher^s disease
     Dosage: 5 VIALS
     Route: 042
     Dates: start: 20160301
  2. ELELYSO [Suspect]
     Active Substance: TALIGLUCERASE ALFA
     Dosage: TWICE A MONTH
     Route: 042
  3. ELELYSO [Suspect]
     Active Substance: TALIGLUCERASE ALFA
     Dosage: TWICE A MONTH
     Route: 042
  4. ELELYSO [Suspect]
     Active Substance: TALIGLUCERASE ALFA
     Dosage: 5 VIALS
     Route: 042
  5. ELELYSO [Suspect]
     Active Substance: TALIGLUCERASE ALFA
     Dosage: 5 VIALS
     Route: 042
  6. ELELYSO [Suspect]
     Active Substance: TALIGLUCERASE ALFA
     Dosage: 5 VIALS
     Route: 042
  7. ELELYSO [Suspect]
     Active Substance: TALIGLUCERASE ALFA
     Dosage: 5 VIALS
     Route: 042
     Dates: start: 20230515
  8. ELELYSO [Suspect]
     Active Substance: TALIGLUCERASE ALFA
     Dosage: 5 VIALS
     Route: 042
  9. ELELYSO [Suspect]
     Active Substance: TALIGLUCERASE ALFA
     Dosage: 5 VIALS
     Route: 042
  10. ELELYSO [Suspect]
     Active Substance: TALIGLUCERASE ALFA
     Dosage: 5 VIALS
     Route: 042
  11. ELELYSO [Suspect]
     Active Substance: TALIGLUCERASE ALFA
     Dosage: 5 VIALS
     Route: 042
     Dates: start: 20230904
  12. ELELYSO [Suspect]
     Active Substance: TALIGLUCERASE ALFA
     Dosage: 5 VIALS
     Route: 042
     Dates: start: 20230918
  13. ELELYSO [Suspect]
     Active Substance: TALIGLUCERASE ALFA
     Dosage: 6 VIALS
     Route: 042
  14. ELELYSO [Suspect]
     Active Substance: TALIGLUCERASE ALFA
     Dosage: TWICE A MONTH
     Route: 042
     Dates: start: 20231115
  15. ELELYSO [Suspect]
     Active Substance: TALIGLUCERASE ALFA
     Dosage: TWICE A MONTH
     Route: 042
     Dates: start: 20240310
  16. ELELYSO [Suspect]
     Active Substance: TALIGLUCERASE ALFA
     Dosage: 6 VIALS
     Route: 042
     Dates: start: 20240505
  17. ELELYSO [Suspect]
     Active Substance: TALIGLUCERASE ALFA
     Dosage: 5 VIALS
     Route: 042
     Dates: start: 20240520
  18. ELELYSO [Suspect]
     Active Substance: TALIGLUCERASE ALFA
     Dosage: 5 VIALS
     Route: 042
     Dates: start: 20240702
  19. ELELYSO [Suspect]
     Active Substance: TALIGLUCERASE ALFA
     Dosage: 5 VIALS
     Route: 042
     Dates: start: 20240716, end: 20240716
  20. ELELYSO [Suspect]
     Active Substance: TALIGLUCERASE ALFA
     Dosage: 5 VIALS
     Route: 042
     Dates: start: 20240804, end: 20240804
  21. ELELYSO [Suspect]
     Active Substance: TALIGLUCERASE ALFA
     Dosage: 5 VIALS
     Route: 042
     Dates: start: 20240901
  22. ELELYSO [Suspect]
     Active Substance: TALIGLUCERASE ALFA
     Dosage: 5 VIALS
     Route: 042
     Dates: start: 20240915
  23. ELELYSO [Suspect]
     Active Substance: TALIGLUCERASE ALFA
     Dosage: TWICE A MONTH
     Route: 042
     Dates: start: 20241009, end: 20241009
  24. ELELYSO [Suspect]
     Active Substance: TALIGLUCERASE ALFA
     Dosage: TWICE A MONTH
     Route: 042
     Dates: start: 20241103, end: 20241103
  25. ELELYSO [Suspect]
     Active Substance: TALIGLUCERASE ALFA
     Dosage: 10 VIALS
     Route: 042
     Dates: start: 20250115
  26. ELELYSO [Suspect]
     Active Substance: TALIGLUCERASE ALFA
     Dosage: 10 VIALS
     Route: 042
     Dates: start: 20250205
  27. ELELYSO [Suspect]
     Active Substance: TALIGLUCERASE ALFA
     Dosage: 10 VIALS
     Route: 042
     Dates: start: 20250410
  28. ELELYSO [Suspect]
     Active Substance: TALIGLUCERASE ALFA
     Dosage: 10 VIALS
     Route: 042
     Dates: start: 20250504, end: 20250504
  29. ELELYSO [Suspect]
     Active Substance: TALIGLUCERASE ALFA
     Dosage: 10 VIALS
     Route: 042
     Dates: start: 20250527
  30. ELELYSO [Suspect]
     Active Substance: TALIGLUCERASE ALFA
     Dosage: 10 VIALS
     Route: 042
     Dates: start: 20250629
  31. ELELYSO [Suspect]
     Active Substance: TALIGLUCERASE ALFA
     Dosage: 10 VIALS
     Route: 042
     Dates: start: 20250907, end: 20250907
  32. ELELYSO [Suspect]
     Active Substance: TALIGLUCERASE ALFA
     Dosage: 10 VIALS
     Route: 042
     Dates: start: 20250921
  33. ELELYSO [Suspect]
     Active Substance: TALIGLUCERASE ALFA
     Dosage: 10 VIALS
     Route: 042
     Dates: start: 20251015

REACTIONS (12)
  - Intestinal obstruction [Unknown]
  - Somnolence [Unknown]
  - Pyrexia [Unknown]
  - Fatigue [Unknown]
  - Asthenia [Unknown]
  - Wheezing [Unknown]
  - Malaise [Unknown]
  - Dizziness [Unknown]
  - Fall [Unknown]
  - Limb injury [Unknown]
  - Intentional dose omission [Unknown]
  - Inappropriate schedule of product administration [Unknown]

NARRATIVE: CASE EVENT DATE: 20240901
